FAERS Safety Report 8313003-1 (Version None)
Quarter: 2012Q2

REPORT INFORMATION
  Report Type: 
  Country: None (occurrence: None)
  Receive Date: 20120424
  Receipt Date: 20120412
  Transmission Date: 20120825
  Serious: Yes (Disabling, Other)
  Sender: FDA-Public Use
  Company Number: 2012MA005048

PATIENT
  Age: 65 Year
  Sex: Female

DRUGS (4)
  1. CANDESARTAN CILEXETIL [Concomitant]
  2. CITALOPRAM [Concomitant]
  3. VERAPAMIL HYDROCHLORIDE [Suspect]
     Dosage: 360 MG;	;PO
     Route: 048
     Dates: start: 20120206, end: 20120224
  4. FOSTAIR [Concomitant]

REACTIONS (1)
  - DEEP VEIN THROMBOSIS [None]
